FAERS Safety Report 4682515-4 (Version None)
Quarter: 2005Q2

REPORT INFORMATION
  Report Type: 
  Country: None (occurrence: None)
  Receive Date: 20050602
  Receipt Date: 20050408
  Transmission Date: 20051028
  Serious: No
  Sender: FDA-Public Use
  Company Number: USA050495334

PATIENT
  Age: 77 Year
  Sex: Female

DRUGS (2)
  1. CYMBALTA [Suspect]
     Indication: NEUROPATHY
     Dosage: 30 MG DAY
     Dates: start: 20050330
  2. PREMARIN [Concomitant]

REACTIONS (6)
  - BURNING SENSATION [None]
  - CONSTIPATION [None]
  - DRY MOUTH [None]
  - DYSPHONIA [None]
  - HYPERHIDROSIS [None]
  - SOMNOLENCE [None]
